FAERS Safety Report 5306827-6 (Version None)
Quarter: 2007Q2

REPORT INFORMATION
  Report Type: 
  Country: None (occurrence: None)
  Receive Date: 20070420
  Receipt Date: 20070420
  Transmission Date: 20071010
  Serious: Yes (Hospitalization)
  Sender: FDA-Public Use
  Company Number: None

PATIENT
  Age: 65 Year
  Sex: Male

DRUGS (1)
  1. CAMPTOSAR [Suspect]
     Indication: COLON CANCER METASTATIC
     Dosage: 250MG IV OVER 1 HR
     Route: 042

REACTIONS (4)
  - ANOREXIA [None]
  - DIARRHOEA [None]
  - NAUSEA [None]
  - VOMITING [None]
